FAERS Safety Report 13609566 (Version 1)
Quarter: 2017Q2

REPORT INFORMATION
  Report Type: Spontaneous
  Country: US (occurrence: US)
  Receive Date: 20170602
  Receipt Date: 20170602
  Transmission Date: 20170830
  Serious: No
  Sender: FDA-Public Use
  Company Number: US-PFIZER INC-2867539

PATIENT
  Age: 47 Year
  Sex: Female
  Weight: 75 kg

DRUGS (5)
  1. NEXIUM [Concomitant]
     Active Substance: ESOMEPRAZOLE MAGNESIUM
     Indication: GASTROOESOPHAGEAL REFLUX DISEASE
     Dosage: 20 MG, HS
     Route: 048
  2. BACTRIM [Concomitant]
     Active Substance: SULFAMETHOXAZOLE\TRIMETHOPRIM
     Indication: URINARY TRACT INFECTION
     Dosage: 0.5 UNIT NOT PROVIDED FREQ: 2 DAY; INTERVAL: 1
     Route: 048
     Dates: start: 20150502, end: 20150503
  3. AZITHROMYCIN ANHYDROUS. [Suspect]
     Active Substance: AZITHROMYCIN ANHYDROUS
     Indication: PNEUMONIA
     Dosage: 500 MG, DAILY
     Route: 041
     Dates: start: 20150503, end: 20150503
  4. SODIUM CHLORIDE. [Suspect]
     Active Substance: SODIUM CHLORIDE
     Indication: PRODUCT USED FOR UNKNOWN INDICATION
     Dosage: UNK
     Route: 041
     Dates: start: 20150503, end: 20150503
  5. OXYCODONE [Concomitant]
     Active Substance: OXYCODONE
     Indication: PAIN
     Dosage: 10 MG, FREQ: 1 HOUR: INTERVAL: 4
     Route: 048

REACTIONS (6)
  - Poor quality drug administered [Recovered/Resolved]
  - Infusion site erythema [Recovered/Resolved]
  - Infusion site pain [Recovered/Resolved]
  - Product colour issue [Recovered/Resolved]
  - Rash macular [Recovered/Resolved]
  - Injection site pruritus [Recovered/Resolved]

NARRATIVE: CASE EVENT DATE: 20150503
